FAERS Safety Report 25247243 (Version 2)
Quarter: 2025Q2

REPORT INFORMATION
  Report Type: Spontaneous
  Country: US (occurrence: US)
  Receive Date: 20250428
  Receipt Date: 20250505
  Transmission Date: 20250717
  Serious: No
  Sender: PFIZER
  Company Number: US-PFIZER INC-202400234675

PATIENT
  Age: 57 Year
  Sex: Female

DRUGS (1)
  1. CIBINQO [Suspect]
     Active Substance: ABROCITINIB
     Indication: Dermatitis atopic
     Dosage: 100 MG, 1X/DAY

REACTIONS (6)
  - Ocular hyperaemia [Unknown]
  - Eye swelling [Unknown]
  - Hypersensitivity [Unknown]
  - Eye pruritus [Unknown]
  - Face oedema [Unknown]
  - Periorbital oedema [Unknown]
